FAERS Safety Report 9919652 (Version 1)
Quarter: 2014Q1

REPORT INFORMATION
  Report Type: Spontaneous
  Country: US (occurrence: US)
  Receive Date: 20140224
  Receipt Date: 20140224
  Transmission Date: 20141002
  Serious: Yes (Other)
  Sender: FDA-Public Use
  Company Number: PHEH2014US003199

PATIENT
  Sex: Female

DRUGS (8)
  1. TASIGNA [Suspect]
     Dosage: 150 MG, Q6H
     Dates: end: 20140208
  2. OMEPRAZOLE [Suspect]
     Dosage: 20 MG, QD
  3. CRESTOR [Concomitant]
     Dosage: 20 MG, QD
  4. LASIX [Concomitant]
     Dosage: 60 MG, BID
  5. KLOR CON [Concomitant]
  6. HUMALOG [Concomitant]
  7. LANTUS [Concomitant]
     Dosage: 40 U, BID
  8. ISOSORBIDE [Concomitant]
     Dosage: 30 MG, 1/2T QAM

REACTIONS (3)
  - Amnesia [Unknown]
  - Blood glucose decreased [Unknown]
  - Hyperhidrosis [Unknown]
